FAERS Safety Report 21965269 (Version 1)
Quarter: 2023Q1

REPORT INFORMATION
  Report Type: Spontaneous
  Country: US (occurrence: US)
  Receive Date: 20230208
  Receipt Date: 20230208
  Transmission Date: 20230417
  Serious: Yes (Hospitalization)
  Sender: FDA-Public Use
  Company Number: US-GBT-019868

PATIENT
  Age: 14 Year
  Sex: Female

DRUGS (1)
  1. OXBRYTA [Suspect]
     Active Substance: VOXELOTOR
     Indication: Sickle cell disease
     Route: 048
     Dates: start: 20210112

REACTIONS (4)
  - Hospitalisation [Unknown]
  - Sickle cell anaemia with crisis [Unknown]
  - Insomnia [Unknown]
  - Depressed mood [Unknown]

NARRATIVE: CASE EVENT DATE: 20230109
